FAERS Safety Report 5992908-0 (Version None)
Quarter: 2008Q4

REPORT INFORMATION
  Report Type: 
  Country: None (occurrence: None)
  Receive Date: 20081210
  Receipt Date: 20081125
  Transmission Date: 20090506
  Serious: Yes (Other)
  Sender: FDA-Public Use
  Company Number: 2008S1021274

PATIENT
  Age: 40 Year
  Sex: Female

DRUGS (15)
  1. ESCITALOPRAM [Suspect]
     Indication: DEPRESSION
     Dosage: 10 MG; DAILY; ORAL, 10 MG; EVERY OTHER DAY; ORAL
     Route: 048
     Dates: start: 20080401
  2. ESCITALOPRAM [Suspect]
     Indication: DEPRESSION
     Dosage: 10 MG; DAILY; ORAL, 10 MG; EVERY OTHER DAY; ORAL
     Route: 048
     Dates: start: 20081111
  3. AMITRIPTYLINE HCL [Suspect]
     Indication: FIBROMYALGIA
     Dosage: 10 MG; DAILY; ORAL
     Route: 048
     Dates: start: 20080101, end: 20080401
  4. TRAMADOL HYDROCHLORIDE [Suspect]
     Indication: ARTHRITIS
     Dosage: 50 MG; DAILY; ORAL
     Route: 048
     Dates: end: 20081001
  5. CYCLOBENZAPRINE HCL [Suspect]
     Indication: ARTHRITIS
     Dosage: 10 MG; DAILY; ORAL
     Route: 048
     Dates: end: 20081001
  6. PHENERGAN HCL [Concomitant]
  7. DARVOCET [Concomitant]
  8. PROPRANOLOL [Concomitant]
  9. METFORMIN HCL [Concomitant]
  10. XANAX [Concomitant]
  11. SYNTHROID [Concomitant]
  12. TRI-SPRINTEC [Concomitant]
  13. HYDROCHLOROTHIAZIDE [Concomitant]
  14. WELLBUTRIN XL [Concomitant]
  15. CENTRUM [Concomitant]

REACTIONS (13)
  - ANOREXIA [None]
  - DRUG INTERACTION [None]
  - FOOD CRAVING [None]
  - HEADACHE [None]
  - MYODESOPSIA [None]
  - NAUSEA [None]
  - PRURITUS GENERALISED [None]
  - RAPID EYE MOVEMENTS SLEEP ABNORMAL [None]
  - SUICIDAL IDEATION [None]
  - TREMOR [None]
  - VISUAL IMPAIRMENT [None]
  - VOMITING [None]
  - WEIGHT INCREASED [None]
